FAERS Safety Report 14591127 (Version 1)
Quarter: 2018Q1

REPORT INFORMATION
  Report Type: Spontaneous
  Country: US (occurrence: US)
  Receive Date: 20180301
  Receipt Date: 20180301
  Transmission Date: 20180509
  Serious: Yes (Hospitalization)
  Sender: FDA-Public Use
  Company Number: None

PATIENT
  Age: 73 Year
  Sex: Male
  Weight: 97.65 kg

DRUGS (6)
  1. METHOTREXATE. [Concomitant]
     Active Substance: METHOTREXATE
     Dates: start: 20171203, end: 20180107
  2. PREDNISONE. [Concomitant]
     Active Substance: PREDNISONE
     Dates: start: 20170725, end: 20180301
  3. RITUXIMAB. [Suspect]
     Active Substance: RITUXIMAB
     Indication: GRANULOMA
     Dosage: ?          OTHER FREQUENCY:DAY 1 AND 14;?
     Route: 041
     Dates: start: 20171024, end: 20171107
  4. RITUXIMAB. [Suspect]
     Active Substance: RITUXIMAB
     Indication: VASCULITIS
     Dosage: ?          OTHER FREQUENCY:DAY 1 AND 14;?
     Route: 041
     Dates: start: 20171024, end: 20171107
  5. COLCHICINE. [Concomitant]
     Active Substance: COLCHICINE
     Dates: start: 20170725, end: 20180108
  6. ALLOPURINOL. [Concomitant]
     Active Substance: ALLOPURINOL
     Dates: start: 20170725, end: 20180108

REACTIONS (3)
  - Guillain-Barre syndrome [None]
  - Muscular weakness [None]
  - Fall [None]

NARRATIVE: CASE EVENT DATE: 20180110
